FAERS Safety Report 6969119-5 (Version None)
Quarter: 2010Q3

REPORT INFORMATION
  Report Type: 
  Country: None (occurrence: None)
  Receive Date: 20100907
  Receipt Date: 20100825
  Transmission Date: 20110219
  Serious: Yes (Other)
  Sender: FDA-Public Use
  Company Number: GXKR2010GB09637

PATIENT
  Age: 38 Year
  Sex: Female
  Weight: 51 kg

DRUGS (5)
  1. LANSOPRAZOLE [Suspect]
     Indication: DYSPEPSIA
     Dosage: 30 MG, UNK
     Route: 048
     Dates: start: 20050201, end: 20090404
  2. OMEPRAZOLE (NGX) [Suspect]
     Dosage: 20 MG
     Route: 048
     Dates: start: 20090404, end: 20090827
  3. CYCLIZINE [Concomitant]
     Dosage: 50 MG AS NECESSARY
  4. GABAPENTIN [Concomitant]
     Dosage: 100 MG, TID
     Route: 065
  5. MORPHINE SULFATE [Concomitant]
     Dosage: 10 MG, BID
     Route: 065

REACTIONS (1)
  - HYPOMAGNESAEMIA [None]
